FAERS Safety Report 17836027 (Version 1)
Quarter: 2020Q2

REPORT INFORMATION
  Report Type: Spontaneous
  Country: GB (occurrence: GB)
  Receive Date: 20200528
  Receipt Date: 20200528
  Transmission Date: 20200714
  Serious: Yes (Other)
  Sender: FDA-Public Use
  Company Number: GB-TEVA-2020-GB-1240545

PATIENT
  Age: 28 Year
  Sex: Female
  Weight: 93 kg

DRUGS (12)
  1. MEFENAMIC ACID. [Concomitant]
     Active Substance: MEFENAMIC ACID
     Dosage: AS DIRECTED. 6 DOSAGE FORMS
     Dates: start: 20200326, end: 20200327
  2. ALVERINE CITRATE [Concomitant]
     Active Substance: ALVERINE CITRATE
     Dosage: 1 OR 2 UP TO 3 TIMES DAILY.
     Dates: start: 20200506
  3. MEBEVERINE HYDROCHLORIDE [Concomitant]
     Active Substance: MEBEVERINE HYDROCHLORIDE
     Dosage: 3 DOSAGE FORMS
     Dates: start: 20200416, end: 20200423
  4. CERELLE [Concomitant]
     Active Substance: DESOGESTREL
     Dosage: 1 DOSAGE FORMS
     Dates: start: 20181221
  5. QVAR [Concomitant]
     Active Substance: BECLOMETHASONE DIPROPIONATE
     Dosage: 1 - 2 DOSES TWICE DAILY.
     Route: 055
     Dates: start: 20190320
  6. SALBUTAMOL [Concomitant]
     Active Substance: ALBUTEROL
     Dosage: 2 DOSAGE FORMS
     Route: 055
     Dates: start: 20190320
  7. TRANEXAMIC ACID. [Concomitant]
     Active Substance: TRANEXAMIC ACID
     Dosage: 3 DOSAGE FORMS
     Dates: start: 20200326, end: 20200415
  8. METOCLOPRAMIDE. [Concomitant]
     Active Substance: METOCLOPRAMIDE
     Dosage: UP TO 3 TIMES.1  DOSAGE FORMS
     Dates: start: 20190812, end: 20200407
  9. FEXOFENADINE [Concomitant]
     Active Substance: FEXOFENADINE HYDROCHLORIDE
     Dosage: 1 DOSAGE FORMS
     Dates: start: 20200506
  10. KOLANTICON [Concomitant]
     Dosage: 80 ML
     Dates: start: 20200416, end: 20200426
  11. DICYCLOVERINE HYDROCHLORIDE [Suspect]
     Active Substance: DICYCLOMINE HYDROCHLORIDE
     Dosage: TAKE ONE OR TWO, THREE TIMES A DAY. 10 MG
     Dates: start: 20200504
  12. ROTIGOTINE [Concomitant]
     Active Substance: ROTIGOTINE
     Dosage: 1 DOSAGE FORMS
     Route: 062
     Dates: start: 20180801

REACTIONS (3)
  - Paraesthesia oral [Unknown]
  - Lip swelling [Unknown]
  - Urticaria [Recovered/Resolved]

NARRATIVE: CASE EVENT DATE: 20200506
